FAERS Safety Report 8467872-5 (Version None)
Quarter: 2012Q2

REPORT INFORMATION
  Report Type: 
  Country: None (occurrence: None)
  Receive Date: 20120626
  Receipt Date: 20120620
  Transmission Date: 20120825
  Serious: Yes (Hospitalization)
  Sender: FDA-Public Use
  Company Number: CA-ROCHE-1081090

PATIENT
  Sex: Female
  Weight: 49.94 kg

DRUGS (5)
  1. TRAMADOL HCL [Concomitant]
  2. ASPIRIN [Concomitant]
  3. DICLOFENAC GEL [Concomitant]
  4. ACTEMRA [Suspect]
     Indication: RHEUMATOID ARTHRITIS
     Route: 042
     Dates: start: 20120512
  5. DICLOFENAC SODIUM [Concomitant]

REACTIONS (3)
  - HIP FRACTURE [None]
  - PAIN IN EXTREMITY [None]
  - FALL [None]
